FAERS Safety Report 13566873 (Version 5)
Quarter: 2017Q3

REPORT INFORMATION
  Report Type: Spontaneous
  Country: IT (occurrence: IT)
  Receive Date: 20170522
  Receipt Date: 20170814
  Transmission Date: 20171127
  Serious: Yes (Hospitalization, Other)
  Sender: FDA-Public Use
  Company Number: IT-ACCORD-045989

PATIENT
  Age: 60 Year
  Sex: Male
  Weight: 60 kg

DRUGS (7)
  1. TORAVAST [Concomitant]
  2. FLUOROURACIL. [Suspect]
     Active Substance: FLUOROURACIL
     Indication: ADENOCARCINOMA GASTRIC
     Dosage: ALSO RECEIVED 3200 MG CYCLICAL INTRAVENOUSLY
     Route: 040
     Dates: start: 20161007
  3. DILATREND [Concomitant]
     Active Substance: CARVEDILOL
  4. ZESTRIL [Concomitant]
     Active Substance: LISINOPRIL
     Dosage: STRENGTH: 20 MG
  5. ESOMEPRAZOLE [Concomitant]
     Active Substance: ESOMEPRAZOLE
  6. PLAVIX [Concomitant]
     Active Substance: CLOPIDOGREL BISULFATE
  7. LEVOFOLINIC ACID [Concomitant]
     Active Substance: LEVOLEUCOVORIN
     Dosage: RECEIVED 330 MG FROM 07-OCT-2016 TO 06-APR-2016
     Route: 042
     Dates: start: 20161007, end: 20161107

REACTIONS (5)
  - Skin hyperpigmentation [Unknown]
  - Thrombocytopenia [Recovering/Resolving]
  - Nail disorder [Unknown]
  - Abdominal pain [Recovering/Resolving]
  - Influenza [Recovering/Resolving]

NARRATIVE: CASE EVENT DATE: 20161010
